FAERS Safety Report 17043295 (Version 1)
Quarter: 2019Q4

REPORT INFORMATION
  Report Type: Spontaneous
  Country: US (occurrence: US)
  Receive Date: 20191118
  Receipt Date: 20191118
  Transmission Date: 20200122
  Serious: No
  Sender: FDA-Public Use
  Company Number: US-JNJFOC-20191107664

PATIENT
  Age: 68 Year
  Sex: Male
  Weight: 97.61 kg

DRUGS (10)
  1. DARZALEX [Suspect]
     Active Substance: DARATUMUMAB
     Dosage: INFUSED AT A RATE OF 25ML/HOUR
     Route: 042
  2. DARZALEX [Suspect]
     Active Substance: DARATUMUMAB
     Dosage: INFUSED AT A RATE OF 150ML/HOUR
     Route: 042
  3. ACYCLOVIR                          /00587301/ [Concomitant]
     Active Substance: ACYCLOVIR
     Route: 065
  4. DARZALEX [Suspect]
     Active Substance: DARATUMUMAB
     Indication: PLASMA CELL MYELOMA
     Dosage: INFUSED AT A RATE OF 50ML/HOUR
     Route: 042
     Dates: start: 20191104
  5. BACTRIM DS [Concomitant]
     Active Substance: SULFAMETHOXAZOLE\TRIMETHOPRIM
     Dosage: ON MONDAY, WEDNESDAY AND FRIDAY
     Route: 065
  6. DEXAMETHASONE. [Concomitant]
     Active Substance: DEXAMETHASONE
     Dosage: ON DAYS NOT TAKING DARATUMUMAB
     Route: 065
  7. FLOMAX [Concomitant]
     Active Substance: TAMSULOSIN HYDROCHLORIDE
     Route: 065
  8. POMALYST [Concomitant]
     Active Substance: POMALIDOMIDE
     Route: 065
  9. LINZESS [Concomitant]
     Active Substance: LINACLOTIDE
  10. SIMVASTATIN. [Concomitant]
     Active Substance: SIMVASTATIN
     Route: 065

REACTIONS (2)
  - Infusion related reaction [Recovered/Resolved]
  - Chills [Recovered/Resolved]

NARRATIVE: CASE EVENT DATE: 20191104
